FAERS Safety Report 5175720-4 (Version None)
Quarter: 2006Q4

REPORT INFORMATION
  Report Type: 
  Country: None (occurrence: None)
  Receive Date: 20061215
  Receipt Date: 20061211
  Transmission Date: 20070319
  Serious: Yes (Hospitalization)
  Sender: FDA-Public Use
  Company Number: IT-BAYER-200616299GDS

PATIENT
  Age: 68 Year
  Sex: Male

DRUGS (1)
  1. CARDIOASPIRIN 100 [Suspect]
     Indication: DRUG USE FOR UNKNOWN INDICATION
     Dosage: TOTAL DAILY DOSE: 100 MG  UNIT DOSE: 100 MG
     Route: 048
     Dates: start: 20060101, end: 20061115

REACTIONS (1)
  - ANAEMIA [None]
